FAERS Safety Report 5382280-1 (Version None)
Quarter: 2007Q3

REPORT INFORMATION
  Report Type: 
  Country: None (occurrence: None)
  Receive Date: 20070709
  Receipt Date: 20070627
  Transmission Date: 20080115
  Serious: Yes (Death)
  Sender: FDA-Public Use
  Company Number: JP-SANOFI-SYNTHELABO-A01200706643

PATIENT
  Age: 70 Year
  Sex: Male
  Weight: 60 kg

DRUGS (3)
  1. ZOLPIDEM [Suspect]
     Indication: INSOMNIA
     Dosage: 5 MG
     Route: 048
     Dates: start: 20060822, end: 20060822
  2. ZOLPIDEM [Suspect]
     Dosage: 5 MG
     Route: 048
     Dates: start: 20060823, end: 20060823
  3. ZOLPIDEM [Suspect]
     Dosage: 5 MG
     Route: 048
     Dates: start: 20060831, end: 20060831

REACTIONS (2)
  - LIVER DISORDER [None]
  - OCULOMUCOCUTANEOUS SYNDROME [None]
